FAERS Safety Report 4516177-3 (Version None)
Quarter: 2004Q4

REPORT INFORMATION
  Report Type: 
  Country: None (occurrence: None)
  Receive Date: 20041130
  Receipt Date: 20041130
  Transmission Date: 20050328
  Serious: Yes (Hospitalization)
  Sender: FDA-Public Use
  Company Number: None

PATIENT
  Sex: Female
  Weight: 92 kg

DRUGS (9)
  1. DIGOXIN [Suspect]
     Indication: ATRIAL FIBRILLATION
     Dosage: 0.125MG DAILY  ORAL
     Route: 048
     Dates: start: 20040101, end: 20040707
  2. LANSOPRAZOLE [Concomitant]
  3. LEVOTHYROXINE SODIUM [Concomitant]
  4. WARFARIN SODIUM [Concomitant]
  5. METOPROLOL [Concomitant]
  6. FUROSEMIDE [Concomitant]
  7. AMIODARONE HCL [Concomitant]
  8. DARVOCET-N 100 [Concomitant]
  9. AMBIEN [Concomitant]

REACTIONS (8)
  - ABDOMINAL PAIN [None]
  - CARDIAC PACEMAKER MALFUNCTION [None]
  - DEHYDRATION [None]
  - DIZZINESS [None]
  - FATIGUE [None]
  - HEART RATE DECREASED [None]
  - NAUSEA [None]
  - THERAPEUTIC AGENT TOXICITY [None]
